FAERS Safety Report 9897785 (Version 1)
Quarter: 2014Q1

REPORT INFORMATION
  Report Type: Spontaneous
  Country: US (occurrence: US)
  Receive Date: 20140214
  Receipt Date: 20140214
  Transmission Date: 20141002
  Serious: Yes (Other)
  Sender: FDA-Public Use
  Company Number: US-UPSHER-SMITH LABORATORIES, INC.-14000266

PATIENT
  Age: 65 Year
  Sex: Female

DRUGS (5)
  1. BACLOFEN [Suspect]
     Indication: MUSCLE SPASMS
     Dosage: UNK MG, ONCE
     Route: 048
     Dates: start: 201401, end: 201401
  2. PROPRANOLOL [Concomitant]
     Indication: HYPERTENSION
     Dosage: UNK
  3. SYNTHROID [Concomitant]
     Indication: THYROIDECTOMY
     Dosage: UNK
  4. MOTRIN [Concomitant]
     Indication: ARTHRITIS
     Dosage: UNK
  5. PRILOSEC [Concomitant]
     Dosage: UNK

REACTIONS (1)
  - Drug hypersensitivity [Recovered/Resolved]
